FAERS Safety Report 7768384-4 (Version None)
Quarter: 2011Q3

REPORT INFORMATION
  Report Type: 
  Country: None (occurrence: None)
  Receive Date: 20110922
  Receipt Date: 20101026
  Transmission Date: 20111222
  Serious: No
  Sender: FDA-Public Use
  Company Number: US-ASTRAZENECA-2010SE50731

PATIENT
  Age: 28 Year
  Sex: Female

DRUGS (2)
  1. CELEXA [Concomitant]
  2. SEROQUEL [Suspect]
     Route: 048

REACTIONS (7)
  - HALLUCINATION [None]
  - FEELING ABNORMAL [None]
  - ANXIETY [None]
  - OBSESSIVE-COMPULSIVE DISORDER [None]
  - FEAR [None]
  - DYSPHEMIA [None]
  - SPEECH DISORDER [None]
